FAERS Safety Report 11150363 (Version 1)
Quarter: 2015Q2

REPORT INFORMATION
  Report Type: Spontaneous
  Country: ES (occurrence: ES)
  Receive Date: 20150531
  Receipt Date: 20150531
  Transmission Date: 20150821
  Serious: Yes (Other)
  Sender: FDA-Public Use
  Company Number: ES-MYLANLABS-2015M1017441

PATIENT

DRUGS (7)
  1. LEVOTHYROXINE SODIUM. [Concomitant]
     Active Substance: LEVOTHYROXINE SODIUM
     Route: 065
  2. ENALAPRIL [Concomitant]
     Active Substance: ENALAPRIL
     Route: 065
  3. ATORVASTATIN [Concomitant]
     Active Substance: ATORVASTATIN
     Route: 065
  4. CLOPIDOGREL [Concomitant]
     Active Substance: CLOPIDOGREL BISULFATE
     Route: 065
  5. CARBOPLATIN. [Suspect]
     Active Substance: CARBOPLATIN
     Indication: CHEMOTHERAPY
     Dosage: 300 MG/M2, OVER 30 MINUTES, EVERY 3 WEEKS
     Route: 041
  6. OMEPRAZOLE. [Concomitant]
     Active Substance: OMEPRAZOLE
     Route: 065
  7. PEMETREXED [Suspect]
     Active Substance: PEMETREXED
     Indication: CHEMOTHERAPY
     Dosage: 400 MG/M2, OVER 10 MINUTES EVERY 3 WEEKS
     Route: 041

REACTIONS (2)
  - Drug ineffective [Unknown]
  - Lupus-like syndrome [Recovered/Resolved]
